FAERS Safety Report 7898480-2 (Version None)
Quarter: 2011Q4

REPORT INFORMATION
  Report Type: 
  Country: None (occurrence: None)
  Receive Date: 20111107
  Receipt Date: 20111025
  Transmission Date: 20120403
  Serious: Yes (Disabling)
  Sender: FDA-Public Use
  Company Number: MX-SANOFI-AVENTIS-2011SA070465

PATIENT
  Age: 51 Year
  Sex: Female

DRUGS (5)
  1. MALIVAL COMPUESTO [Concomitant]
     Route: 048
     Dates: start: 20010101
  2. METHOTREXATE [Concomitant]
     Route: 048
     Dates: start: 20010101
  3. AZULFIDINE [Concomitant]
     Route: 048
     Dates: start: 20010101
  4. ARAVA [Suspect]
     Route: 048
     Dates: start: 20010101
  5. AMINOSALICYLIC ACID [Concomitant]
     Route: 048
     Dates: start: 20010101

REACTIONS (4)
  - ARTHRALGIA [None]
  - PARAESTHESIA [None]
  - MUSCULAR WEAKNESS [None]
  - DYSAESTHESIA [None]
